FAERS Safety Report 8285379-5 (Version None)
Quarter: 2012Q2

REPORT INFORMATION
  Report Type: 
  Country: None (occurrence: None)
  Receive Date: 20120413
  Receipt Date: 20111010
  Transmission Date: 20120825
  Serious: No
  Sender: FDA-Public Use
  Company Number: US-ASTRAZENECA-2011SE61362

PATIENT
  Age: 28 Year
  Sex: Female

DRUGS (8)
  1. VITAMINE C [Concomitant]
  2. MYLANTA [Concomitant]
  3. OMEPRAZOLE [Suspect]
     Indication: ABDOMINAL DISCOMFORT
     Route: 048
  4. DOXYCYCLINE [Concomitant]
     Indication: SINUSITIS
  5. NEXIUM [Suspect]
     Route: 048
  6. BISMUTH SUBSALICYLATE [Concomitant]
  7. LOMOTIL [Concomitant]
  8. MULTI-VITAMIN [Concomitant]

REACTIONS (8)
  - CONTUSION [None]
  - DIARRHOEA [None]
  - IRRITABLE BOWEL SYNDROME [None]
  - ECCHYMOSIS [None]
  - WRONG DRUG ADMINISTERED [None]
  - MATERNAL EXPOSURE DURING PREGNANCY [None]
  - FATIGUE [None]
  - PERIPHERAL COLDNESS [None]
